FAERS Safety Report 10568831 (Version 2)
Quarter: 2015Q2

REPORT INFORMATION
  Report Type: Report from Study
  Country: US (occurrence: US)
  Receive Date: 20141106
  Receipt Date: 20150521
  Transmission Date: 20150821
  Serious: Yes (Other)
  Sender: FDA-Public Use
  Company Number: US-GILEAD-2014-0121474

PATIENT
  Age: 19 Year
  Sex: Male

DRUGS (3)
  1. AMBRISENTAN [Suspect]
     Active Substance: AMBRISENTAN
     Indication: PULMONARY ARTERIAL HYPERTENSION
     Dosage: 5 MG, QD
     Route: 065
     Dates: start: 20140107
  2. TYVASO [Concomitant]
     Active Substance: TREPROSTINIL
  3. OXYGEN. [Concomitant]
     Active Substance: OXYGEN

REACTIONS (1)
  - Loss of consciousness [Unknown]
